FAERS Safety Report 15175392 (Version 1)
Quarter: 2018Q3

REPORT INFORMATION
  Report Type: Report from Study
  Country: US (occurrence: US)
  Receive Date: 20180720
  Receipt Date: 20180720
  Transmission Date: 20181010
  Serious: No
  Sender: FDA-Public Use
  Company Number: US-AMGEN-USASL2018066325

PATIENT
  Age: 68 Year
  Sex: Female
  Weight: 57.14 kg

DRUGS (2)
  1. REPATHA [Suspect]
     Active Substance: EVOLOCUMAB
     Indication: LOW DENSITY LIPOPROTEIN DECREASED
     Dosage: 140 MG, Q2WK
     Route: 065
     Dates: start: 20180425, end: 20180523
  2. REPATHA [Suspect]
     Active Substance: EVOLOCUMAB
     Indication: ISCHAEMIC HEART DISEASE PROPHYLAXIS

REACTIONS (5)
  - Myalgia [Recovering/Resolving]
  - Feeling abnormal [Unknown]
  - Feeling cold [Recovering/Resolving]
  - Rhinorrhoea [Recovering/Resolving]
  - Bone pain [Recovering/Resolving]

NARRATIVE: CASE EVENT DATE: 20180425
